FAERS Safety Report 18633119 (Version 1)
Quarter: 2020Q4

REPORT INFORMATION
  Report Type: Spontaneous
  Country: US (occurrence: US)
  Receive Date: 20201217
  Receipt Date: 20201217
  Transmission Date: 20210114
  Serious: Yes (Death)
  Sender: FDA-Public Use
  Company Number: None

PATIENT
  Age: 68 Year
  Sex: Male

DRUGS (9)
  1. LEVOTHYROXINE. [Concomitant]
     Active Substance: LEVOTHYROXINE
  2. CARVEDILOL. [Concomitant]
     Active Substance: CARVEDILOL
  3. PRAVASTATIN. [Concomitant]
     Active Substance: PRAVASTATIN
  4. TACROLIMUS, 1MG [Suspect]
     Active Substance: TACROLIMUS
     Indication: RENAL TRANSPLANT
     Route: 048
     Dates: start: 20201011, end: 20201129
  5. VICTOZA [Concomitant]
     Active Substance: LIRAGLUTIDE
  6. MYCOPHENOLIC ACID DR, 360MG [Suspect]
     Active Substance: MYCOPHENOLIC ACID
     Indication: RENAL TRANSPLANT
     Route: 048
     Dates: start: 20201011, end: 20201129
  7. ALLOPURINOL. [Concomitant]
     Active Substance: ALLOPURINOL
  8. NOVOLOG FLEX PEN U 100 [Concomitant]
  9. LEVIMIR FLEX TOUCH U 100 [Concomitant]

REACTIONS (1)
  - COVID-19 [None]

NARRATIVE: CASE EVENT DATE: 20201129
